FAERS Safety Report 8101810-X (Version None)
Quarter: 2012Q1

REPORT INFORMATION
  Report Type: 
  Country: None (occurrence: None)
  Receive Date: 20120131
  Receipt Date: 20120124
  Transmission Date: 20120608
  Serious: Yes (Hospitalization, Other)
  Sender: FDA-Public Use
  Company Number: PHHY2012BR007442

PATIENT
  Age: 80 Year
  Sex: Female

DRUGS (1)
  1. TEGRETOL-XR [Suspect]
     Indication: MUSCLE SPASMS
     Dosage: 1 DF, Q12H
     Dates: start: 20120121, end: 20120122

REACTIONS (5)
  - DAYDREAMING [None]
  - MALAISE [None]
  - DECREASED APPETITE [None]
  - ANAEMIA [None]
  - CONFUSIONAL STATE [None]
